FAERS Safety Report 7766801-7 (Version None)
Quarter: 2011Q3

REPORT INFORMATION
  Report Type: 
  Country: None (occurrence: None)
  Receive Date: 20110922
  Receipt Date: 20101213
  Transmission Date: 20111222
  Serious: No
  Sender: FDA-Public Use
  Company Number: US-ASTRAZENECA-2010SE59032

PATIENT
  Age: 21 Year
  Sex: Male
  Weight: 68 kg

DRUGS (1)
  1. SEROQUEL [Suspect]
     Route: 048

REACTIONS (2)
  - NIGHTMARE [None]
  - DRUG DOSE OMISSION [None]
